FAERS Safety Report 5463139-8 (Version None)
Quarter: 2007Q3

REPORT INFORMATION
  Report Type: 
  Country: None (occurrence: None)
  Receive Date: 20070920
  Receipt Date: 20070912
  Transmission Date: 20080115
  Serious: Yes (Hospitalization)
  Sender: FDA-Public Use
  Company Number: FR-ROCHE-502357

PATIENT
  Age: 76 Year
  Sex: Female

DRUGS (1)
  1. CAPECITABINE [Suspect]
     Dosage: CUMULTATIVE DOSE: 43200 MG.
     Route: 048
     Dates: start: 20061006

REACTIONS (1)
  - FEMALE GENITAL TRACT FISTULA [None]
